FAERS Safety Report 6072484-7 (Version None)
Quarter: 2009Q1

REPORT INFORMATION
  Report Type: 
  Country: None (occurrence: None)
  Receive Date: 20090210
  Receipt Date: 20090119
  Transmission Date: 20090719
  Serious: Yes (Hospitalization)
  Sender: FDA-Public Use
  Company Number: FR-ROCHE-612938

PATIENT
  Sex: Male

DRUGS (4)
  1. RIVOTRIL [Suspect]
     Indication: EPILEPSY
     Route: 048
     Dates: start: 20080811, end: 20080926
  2. URBANYL [Suspect]
     Indication: EPILEPSY
     Dosage: DOSAGE REPORTED: 1 DF QD.
     Route: 048
     Dates: end: 20080926
  3. KEPPRA [Suspect]
     Indication: EPILEPSY
     Dosage: DOSAGE REPORTED: 4DF QD
     Route: 048
     Dates: end: 20080926
  4. EPITOMAX [Suspect]
     Indication: EPILEPSY
     Dosage: DOSAGE REPORTED: 6DF QD.
     Route: 048
     Dates: end: 20080926

REACTIONS (4)
  - AGGRESSION [None]
  - AGITATION [None]
  - DELIRIUM [None]
  - INSOMNIA [None]
